FAERS Safety Report 9345455 (Version 1)
Quarter: 2013Q2

REPORT INFORMATION
  Report Type: Spontaneous
  Country: US (occurrence: US)
  Receive Date: 20130613
  Receipt Date: 20130613
  Transmission Date: 20140414
  Serious: Yes (Hospitalization)
  Sender: FDA-Public Use
  Company Number: US-ASTRAZENECA-2013SE41162

PATIENT
  Age: 25 Year
  Sex: Male
  Weight: 150.6 kg

DRUGS (6)
  1. VIMOVO [Suspect]
     Indication: GOUT
     Dosage: 375/20 MG BID
     Route: 048
     Dates: start: 20130403, end: 20130417
  2. VIMOVO [Suspect]
     Indication: GOUT
     Dosage: 375/20 MG QD
     Route: 048
     Dates: start: 20130418, end: 20130422
  3. LESINURAD [Suspect]
     Indication: GOUT
     Route: 048
     Dates: start: 20130419, end: 20130420
  4. IBUPROFEN [Concomitant]
     Dates: start: 2003, end: 20130402
  5. ALLOPURINOL [Concomitant]
     Dates: start: 2004, end: 2010
  6. ULORIC [Concomitant]
     Dates: start: 2010, end: 2010

REACTIONS (2)
  - Renal failure acute [Recovered/Resolved]
  - Renal tubular necrosis [Unknown]
